FAERS Safety Report 15546616 (Version 1)
Quarter: 2018Q4

REPORT INFORMATION
  Report Type: Spontaneous
  Country: LB (occurrence: LB)
  Receive Date: 20181024
  Receipt Date: 20181024
  Transmission Date: 20190205
  Serious: Yes (Other)
  Sender: FDA-Public Use
  Company Number: LB-ABBVIE-18P-093-2239596-00

PATIENT
  Age: 21 Year
  Sex: Female

DRUGS (11)
  1. VENETOCLAX. [Suspect]
     Active Substance: VENETOCLAX
     Dosage: DAY 3
     Route: 048
     Dates: start: 20180119, end: 20180119
  2. PREDNISONE. [Concomitant]
     Active Substance: PREDNISONE
     Dates: start: 20180201
  3. DAUNOMYCIN [Concomitant]
     Active Substance: DAUNORUBICIN
     Indication: ACUTE LYMPHOCYTIC LEUKAEMIA
     Dosage: 25 MG/M2
     Dates: start: 20171229
  4. VENETOCLAX. [Suspect]
     Active Substance: VENETOCLAX
     Indication: ACUTE LYMPHOCYTIC LEUKAEMIA
     Dosage: DAY 1
     Route: 048
     Dates: start: 20180117, end: 20180117
  5. PREDNISONE. [Concomitant]
     Active Substance: PREDNISONE
     Indication: ACUTE LYMPHOCYTIC LEUKAEMIA
     Dosage: 60 MG/M2 DAILY
     Dates: start: 20171229
  6. VINCRISTINE [Concomitant]
     Active Substance: VINCRISTINE
     Indication: ACUTE LYMPHOCYTIC LEUKAEMIA
     Dosage: 1.5 MG/M2 (CAPPED AT 2 MG)
     Dates: start: 20171229
  7. VENETOCLAX. [Suspect]
     Active Substance: VENETOCLAX
     Dosage: DAY 2
     Route: 048
     Dates: start: 20180118, end: 20180118
  8. VENETOCLAX. [Suspect]
     Active Substance: VENETOCLAX
     Dosage: DAY 4
     Route: 048
     Dates: start: 20180120, end: 20180120
  9. L-ASPARAGINASE [Concomitant]
     Active Substance: ASPARAGINASE
     Indication: ACUTE LYMPHOCYTIC LEUKAEMIA
     Dosage: 6000 UNITS/M2, 3 TIMES WEEKLY FOR 9 DOSE
     Dates: start: 20171229
  10. VENETOCLAX. [Suspect]
     Active Substance: VENETOCLAX
     Route: 048
     Dates: start: 20180121, end: 20180209
  11. VINCRISTINE [Concomitant]
     Active Substance: VINCRISTINE
     Dates: start: 20180201

REACTIONS (3)
  - Mucormycosis [Not Recovered/Not Resolved]
  - Off label use [Unknown]
  - Aspergillus infection [Not Recovered/Not Resolved]

NARRATIVE: CASE EVENT DATE: 20180119
